FAERS Safety Report 14039230 (Version 1)
Quarter: 2017Q4

REPORT INFORMATION
  Report Type: Spontaneous
  Country: US (occurrence: US)
  Receive Date: 20171004
  Receipt Date: 20171004
  Transmission Date: 20180321
  Serious: No
  Sender: FDA-Public Use
  Company Number: US-INDIVIOR LIMITED-INDV-099109-2017

PATIENT
  Sex: Male

DRUGS (2)
  1. SUBOXONE [Suspect]
     Active Substance: BUPRENORPHINE HYDROCHLORIDE\NALOXONE HYDROCHLORIDE
     Indication: PRODUCT USED FOR UNKNOWN INDICATION
     Dosage: 16 MG, TWICE DAILY
     Route: 065
  2. SUBOXONE [Suspect]
     Active Substance: BUPRENORPHINE HYDROCHLORIDE\NALOXONE HYDROCHLORIDE
     Dosage: TRIED TO WEEN DOWN
     Route: 065

REACTIONS (6)
  - Intentional underdose [Recovered/Resolved]
  - Product use issue [Not Recovered/Not Resolved]
  - Aggression [Unknown]
  - Adverse event [Unknown]
  - Prescribed overdose [Not Recovered/Not Resolved]
  - Drug dependence [Unknown]
